FAERS Safety Report 23938275 (Version 1)
Quarter: 2024Q2

REPORT INFORMATION
  Report Type: Spontaneous
  Country: US (occurrence: None)
  Receive Date: 20240604
  Receipt Date: 20240604
  Transmission Date: 20240716
  Serious: Yes (Hospitalization)
  Sender: FDA-Public Use
  Company Number: None

PATIENT
  Sex: Female

DRUGS (1)
  1. RETACRIT [Suspect]
     Active Substance: EPOETIN ALFA-EPBX
     Indication: Anaemia
     Dosage: STRENGTH : 10,000U/ML?DOSE: 10,000 UNITS?FREQUENCY : WEEKLY;?
     Route: 058
     Dates: start: 202310

REACTIONS (2)
  - Chronic kidney disease [None]
  - Dialysis [None]
